FAERS Safety Report 4499065-0 (Version None)
Quarter: 2004Q4

REPORT INFORMATION
  Report Type: 
  Country: None (occurrence: None)
  Receive Date: 20041111
  Receipt Date: 20041022
  Transmission Date: 20050328
  Serious: Yes (Hospitalization, Other)
  Sender: FDA-Public Use
  Company Number: FR-BRISTOL-MYERS SQUIBB COMPANY-12740601

PATIENT
  Age: 73 Year
  Sex: Female

DRUGS (4)
  1. CYTOXAN [Suspect]
     Indication: CHRONIC LYMPHOCYTIC LEUKAEMIA
     Route: 042
     Dates: start: 20030315, end: 20030615
  2. NEUPOGEN [Suspect]
     Indication: NEUTROPENIA
     Route: 058
     Dates: start: 20030718, end: 20030816
  3. FLUDARABINE [Suspect]
     Route: 042
     Dates: start: 20030315, end: 20030615
  4. GRANOCYTE [Suspect]
     Route: 058
     Dates: start: 20030614, end: 20030718

REACTIONS (5)
  - FEBRILE BONE MARROW APLASIA [None]
  - HAEMOLYTIC ANAEMIA [None]
  - NEUTROPENIA [None]
  - PANCYTOPENIA [None]
  - THROMBOCYTOPENIA [None]
